FAERS Safety Report 6904650-X (Version None)
Quarter: 2010Q3

REPORT INFORMATION
  Report Type: 
  Country: None (occurrence: None)
  Receive Date: 20100804
  Receipt Date: 20090629
  Transmission Date: 20110219
  Serious: No
  Sender: FDA-Public Use
  Company Number: US-PFIZER INC-2009195408

PATIENT
  Sex: Female
  Weight: 65.76 kg

DRUGS (4)
  1. LYRICA [Suspect]
     Indication: MYALGIA
     Dosage: 75 MG, 2X/DAY
     Route: 048
     Dates: start: 20090320
  2. LEVOTHYROXINE [Concomitant]
     Dosage: UNK
  3. ALENDRONATE SODIUM [Concomitant]
     Dosage: UNK
  4. ACETYLSALICYLIC ACID [Concomitant]
     Dosage: UNK

REACTIONS (4)
  - DRUG EFFECT DECREASED [None]
  - ENERGY INCREASED [None]
  - INSOMNIA [None]
  - PAIN [None]
